FAERS Safety Report 25084211 (Version 5)
Quarter: 2025Q3

REPORT INFORMATION
  Report Type: Report from Study
  Country: US (occurrence: US)
  Receive Date: 20250317
  Receipt Date: 20250806
  Transmission Date: 20251021
  Serious: Yes (Hospitalization, Other)
  Sender: ACADIA PHARMACEUTICALS
  Company Number: US-ACADIA PHARMACEUTICALS INC.-ACA-2025-TRF-002888

PATIENT
  Sex: Female

DRUGS (6)
  1. DAYBUE [Suspect]
     Active Substance: TROFINETIDE
     Indication: Rett syndrome
     Dosage: 40 MILLILITER, BID
     Route: 048
  2. DAYBUE [Suspect]
     Active Substance: TROFINETIDE
     Dosage: 40 MILLILITER, BID
     Route: 048
  3. ZONEGRAN [Suspect]
     Active Substance: ZONISAMIDE
     Indication: Product used for unknown indication
     Route: 065
  4. ZONEGRAN [Suspect]
     Active Substance: ZONISAMIDE
     Route: 065
  5. CLOBAZAM [Concomitant]
     Active Substance: CLOBAZAM
     Indication: Seizure
  6. CLOBAZAM [Concomitant]
     Active Substance: CLOBAZAM

REACTIONS (7)
  - Septic shock [Not Recovered/Not Resolved]
  - Kidney infection [Not Recovered/Not Resolved]
  - Nephrolithiasis [Not Recovered/Not Resolved]
  - Sepsis [Not Recovered/Not Resolved]
  - Stent placement [Not Recovered/Not Resolved]
  - Ureteral stent removal [Not Recovered/Not Resolved]
  - Product dose omission issue [Not Recovered/Not Resolved]
